FAERS Safety Report 7159018-0 (Version None)
Quarter: 2010Q4

REPORT INFORMATION
  Report Type: 
  Country: None (occurrence: None)
  Receive Date: 20101214
  Receipt Date: 20101213
  Transmission Date: 20110411
  Serious: Yes (Hospitalization, Congenital Anomaly, Other)
  Sender: FDA-Public Use
  Company Number: US-PFIZER INC-2010092577

PATIENT
  Sex: Female
  Weight: 4.6 kg

DRUGS (10)
  1. ZOLOFT [Suspect]
     Indication: AFFECTIVE DISORDER
     Dosage: UNK
     Route: 064
  2. METFORMIN [Concomitant]
     Indication: GESTATIONAL DIABETES
     Dosage: 500 MG, 3X/DAY
  3. METFORMIN [Concomitant]
     Indication: ABORTION SPONTANEOUS
  4. ALBUTEROL [Concomitant]
  5. DOXYCYCLINE [Concomitant]
     Indication: MYCOPLASMA INFECTION
     Dosage: 100 MG, 2X/DAY FOR 1 WEEK
  6. UNISOM [Concomitant]
     Dosage: UNK
  7. VITAMIN B6 [Concomitant]
     Dosage: UNK
  8. BUSPAR [Concomitant]
  9. ZYPREXA [Concomitant]
  10. TRILEPTAL [Concomitant]
     Indication: DEPRESSION

REACTIONS (2)
  - COARCTATION OF THE AORTA [None]
  - DRUG EXPOSURE DURING PREGNANCY [None]
